FAERS Safety Report 8699731 (Version 2)
Quarter: 2012Q4

REPORT INFORMATION
  Report Type: 
  Country: DE (occurrence: DE)
  Receive Date: 20120802
  Receipt Date: 20121220
  Transmission Date: 20130627
  Serious: Yes (Hospitalization)
  Sender: FDA-Public Use
  Company Number: DE-GLAXOSMITHKLINE-D0076535A

PATIENT
  Age: 86 Year
  Sex: Male

DRUGS (1)
  1. DUODART [Suspect]
     Route: 048
     Dates: start: 2010

REACTIONS (2)
  - Urinary retention [Unknown]
  - Sepsis [Unknown]
